FAERS Safety Report 9399376 (Version 1)
Quarter: 2013Q3

REPORT INFORMATION
  Report Type: Spontaneous
  Country: US (occurrence: US)
  Receive Date: 20130715
  Receipt Date: 20130715
  Transmission Date: 20140515
  Serious: Yes (Other)
  Sender: FDA-Public Use
  Company Number: US-PFIZER INC-2013204370

PATIENT
  Sex: Male

DRUGS (4)
  1. NEURONTIN [Suspect]
     Dosage: UNK
  2. GABAPENTIN [Suspect]
     Dosage: 200 MG, UNK
  3. INSULIN [Suspect]
     Indication: DIABETES MELLITUS
     Dosage: UNK
  4. LISINOPRIL [Concomitant]
     Indication: HYPERTENSION
     Dosage: UNK

REACTIONS (6)
  - Blood glucose increased [Unknown]
  - Hypersensitivity [Unknown]
  - Rash [Unknown]
  - Drug intolerance [Unknown]
  - Muscle spasms [Unknown]
  - Diabetic neuropathy [Unknown]
